FAERS Safety Report 25241479 (Version 2)
Quarter: 2025Q2

REPORT INFORMATION
  Report Type: Spontaneous
  Country: US (occurrence: US)
  Receive Date: 20250425
  Receipt Date: 20250425
  Transmission Date: 20250716
  Serious: Yes (Hospitalization)
  Sender: AMGEN
  Company Number: US-AMGEN-USASP2025077145

PATIENT
  Age: 35 Year
  Sex: Female

DRUGS (6)
  1. PREDNISONE [Suspect]
     Active Substance: PREDNISONE
     Indication: Pruritus
     Dosage: 40 MILLIGRAM, QD (FOR 2 WEEKS)
     Route: 065
  2. CHOLESTYRAMINE [Concomitant]
     Active Substance: CHOLESTYRAMINE
     Indication: Pruritus
  3. URSODIOL [Concomitant]
     Active Substance: URSODIOL
     Indication: Pruritus
  4. DIPHENHYDRAMINE [Concomitant]
     Active Substance: DIPHENHYDRAMINE
     Indication: Pruritus
  5. HYDROXYZINE [Concomitant]
     Active Substance: HYDROXYZINE HYDROCHLORIDE
     Indication: Pruritus
  6. NALTREXONE [Concomitant]
     Active Substance: NALTREXONE
     Indication: Pruritus

REACTIONS (7)
  - Pruritus [Unknown]
  - Drug ineffective for unapproved indication [Unknown]
  - Abdominal discomfort [Unknown]
  - Chromaturia [Unknown]
  - Blood bilirubin increased [Unknown]
  - Off label use [Unknown]
  - Insomnia [Unknown]
